FAERS Safety Report 9041184 (Version 1)
Quarter: 2013Q1

REPORT INFORMATION
  Report Type: Spontaneous
  Country: US (occurrence: None)
  Receive Date: 20130123
  Receipt Date: 20130123
  Transmission Date: 20140127
  Serious: Yes (Other)
  Sender: FDA-Public Use
  Company Number: None

PATIENT
  Sex: Female
  Weight: 61.24 kg

DRUGS (1)
  1. SYNTHROID [Suspect]
     Indication: THYROID CANCER
     Dosage: 1 A DAY   ONE A DAY
     Dates: start: 201112, end: 201212

REACTIONS (2)
  - Malabsorption [None]
  - Neurological symptom [None]
